FAERS Safety Report 5840437-7 (Version None)
Quarter: 2008Q3

REPORT INFORMATION
  Report Type: 
  Country: None (occurrence: None)
  Receive Date: 20080811
  Receipt Date: 20080728
  Transmission Date: 20090109
  Serious: No
  Sender: FDA-Public Use
  Company Number: US-ASTRAZENECA-2006UW23790

PATIENT
  Age: 21734 Day
  Sex: Female
  Weight: 129.3 kg

DRUGS (3)
  1. SEROQUEL [Suspect]
     Indication: SCHIZOPHRENIA
     Route: 048
     Dates: start: 19970101, end: 20020101
  2. NAVANE [Concomitant]
  3. ARTANE [Concomitant]

REACTIONS (2)
  - CARDIAC DISORDER [None]
  - TYPE 2 DIABETES MELLITUS [None]
